FAERS Safety Report 9910781 (Version 2)
Quarter: 2014Q2

REPORT INFORMATION
  Report Type: Spontaneous
  Country: US (occurrence: US)
  Receive Date: 20140219
  Receipt Date: 20140403
  Transmission Date: 20141212
  Serious: Yes (Other)
  Sender: FDA-Public Use
  Company Number: US-BAYER-2014-021350

PATIENT
  Age: 83 Year
  Sex: Female

DRUGS (1)
  1. BETAPACE AF [Suspect]
     Indication: ARRHYTHMIA
     Dosage: 80 MG, 1.5 TABLET IN AM + 1 TABLET IN PM
     Route: 048
     Dates: start: 1998

REACTIONS (1)
  - Arrhythmia [None]
